FAERS Safety Report 8423035-0 (Version None)
Quarter: 2012Q2

REPORT INFORMATION
  Report Type: 
  Country: None (occurrence: None)
  Receive Date: 20120608
  Receipt Date: 20120604
  Transmission Date: 20120825
  Serious: Yes (Death, Hospitalization)
  Sender: FDA-Public Use
  Company Number: FR-ASTRAZENECA-2012SE37372

PATIENT
  Sex: Female

DRUGS (9)
  1. LESCOL [Concomitant]
  2. AMLODIPINE BESYLATE [Concomitant]
  3. PREDNISONE TAB [Suspect]
     Route: 048
     Dates: start: 20120315, end: 20120324
  4. SULFARLEM [Concomitant]
  5. ARTISIAL [Concomitant]
     Dosage: 1 VIAL PER MONTH
  6. ACETAMINOPHEN AND TRAMADOL HCL [Concomitant]
     Dates: start: 20120301
  7. ISRADIPINE [Concomitant]
  8. OMEPRAZOLE [Suspect]
     Route: 048
     Dates: start: 20120301, end: 20120301
  9. DAFLON [Concomitant]

REACTIONS (7)
  - PYREXIA [None]
  - CHILLS [None]
  - TOXIC SKIN ERUPTION [None]
  - DERMATITIS BULLOUS [None]
  - CONFUSIONAL STATE [None]
  - ACUTE RESPIRATORY DISTRESS SYNDROME [None]
  - ENTEROBACTER SEPSIS [None]
